FAERS Safety Report 12520575 (Version 1)
Quarter: 2016Q2

REPORT INFORMATION
  Report Type: Spontaneous
  Country: US (occurrence: None)
  Receive Date: 20160630
  Receipt Date: 20160630
  Transmission Date: 20160815
  Serious: Yes (Other)
  Sender: FDA-Public Use
  Company Number: None

PATIENT
  Age: 18 Year
  Sex: Female
  Weight: 62.14 kg

DRUGS (1)
  1. NEXPLANON [Suspect]
     Active Substance: ETONOGESTREL
     Indication: CONTRACEPTION

REACTIONS (10)
  - Irritability [None]
  - Dyspnoea [None]
  - Implant site reaction [None]
  - Hypertension [None]
  - Abdominal pain lower [None]
  - Costochondritis [None]
  - Acne [None]
  - Depressed mood [None]
  - Headache [None]
  - Vaginal haemorrhage [None]

NARRATIVE: CASE EVENT DATE: 20160405
